FAERS Safety Report 21877120 (Version 1)
Quarter: 2023Q1

REPORT INFORMATION
  Report Type: Spontaneous
  Country: DE (occurrence: DE)
  Receive Date: 20230118
  Receipt Date: 20230118
  Transmission Date: 20230418
  Serious: Yes (Hospitalization)
  Sender: FDA-Public Use
  Company Number: DE-TEVA-2022-DE-2841186

PATIENT
  Age: 33 Year
  Sex: Female

DRUGS (7)
  1. MIRTAZAPINE [Interacting]
     Active Substance: MIRTAZAPINE
     Indication: Depression
     Dosage: UNK
     Route: 065
  2. OLANZAPINE [Interacting]
     Active Substance: OLANZAPINE
     Indication: Depression
     Dosage: UNK
     Route: 065
  3. TEMAZEPAM [Suspect]
     Active Substance: TEMAZEPAM
     Indication: Product used for unknown indication
     Dosage: UNK
     Route: 065
  4. FLUOXETINE [Interacting]
     Active Substance: FLUOXETINE HYDROCHLORIDE
     Indication: Depression
     Dosage: UNK
     Route: 065
  5. FLUCONAZOLE [Interacting]
     Active Substance: FLUCONAZOLE
     Indication: Depression
     Dosage: UNK
     Route: 065
  6. SPRYCEL [Interacting]
     Active Substance: DASATINIB
     Indication: Chronic leukaemia
     Dosage: UNK
     Route: 065
  7. MELPERONE [Interacting]
     Active Substance: MELPERONE
     Indication: Depression
     Dosage: UNK
     Route: 065

REACTIONS (9)
  - Amnesia [Unknown]
  - Feeling abnormal [Unknown]
  - Panic attack [Unknown]
  - Therapeutic product ineffective [Unknown]
  - Cognitive disorder [Unknown]
  - Drug interaction [Unknown]
  - Palpitations [Unknown]
  - Loss of personal independence in daily activities [Unknown]
  - Nervous system disorder [Unknown]

NARRATIVE: CASE EVENT DATE: 20221223
